FAERS Safety Report 14737579 (Version 1)
Quarter: 2018Q2

REPORT INFORMATION
  Report Type: Spontaneous
  Country: US (occurrence: US)
  Receive Date: 20180404
  Receipt Date: 20180404
  Transmission Date: 20180711
  Serious: Yes (Hospitalization)
  Sender: FDA-Public Use
  Company Number: None

PATIENT
  Age: 68 Year
  Sex: Female

DRUGS (22)
  1. TRAMADOL HCL [Concomitant]
     Active Substance: TRAMADOL HYDROCHLORIDE
  2. GABAPENTIN. [Concomitant]
     Active Substance: GABAPENTIN
  3. VITAMIN D [Concomitant]
     Active Substance: CHOLECALCIFEROL
  4. GLUCOSAMINE [Concomitant]
     Active Substance: GLUCOSAMINE
  5. FORADIL [Concomitant]
     Active Substance: FORMOTEROL FUMARATE
  6. FISH OIL [Concomitant]
     Active Substance: FISH OIL
  7. COMBIPATCH [Concomitant]
     Active Substance: ESTRADIOL\NORETHINDRONE ACETATE
  8. LIDODERM [Concomitant]
     Active Substance: LIDOCAINE
  9. ACIPHEX [Concomitant]
     Active Substance: RABEPRAZOLE SODIUM
  10. FEXOFENADINE [Concomitant]
     Active Substance: FEXOFENADINE\FEXOFENADINE HYDROCHLORIDE
  11. DILAUDID [Concomitant]
     Active Substance: HYDROMORPHONE HYDROCHLORIDE
  12. CYCLOBENZAPR [Concomitant]
     Active Substance: CYCLOBENZAPRINE
  13. RA CALCIUM [Concomitant]
  14. VITAMIN E [Concomitant]
     Active Substance: .ALPHA.-TOCOPHEROL
  15. VITAMIN C [Concomitant]
     Active Substance: ASCORBIC ACID
  16. ASPIRIN. [Concomitant]
     Active Substance: ASPIRIN
  17. COLACE [Concomitant]
     Active Substance: DOCUSATE SODIUM
  18. DIAZEPAM. [Concomitant]
     Active Substance: DIAZEPAM
  19. PREVIDENT [Concomitant]
     Active Substance: SODIUM FLUORIDE
  20. TYLENOL PM [Concomitant]
     Active Substance: ACETAMINOPHEN\DIPHENHYDRAMINE
  21. GLATIRAMER [Suspect]
     Active Substance: GLATIRAMER
     Indication: MULTIPLE SCLEROSIS
     Route: 058
     Dates: start: 20171103, end: 201804
  22. TRICOR [Concomitant]
     Active Substance: FENOFIBRATE

REACTIONS (4)
  - Balance disorder [None]
  - Urinary retention [None]
  - Condition aggravated [None]
  - Functional gastrointestinal disorder [None]

NARRATIVE: CASE EVENT DATE: 20180401
